FAERS Safety Report 9384562 (Version 2)
Quarter: 2013Q3

REPORT INFORMATION
  Report Type: Report from Study
  Country: US (occurrence: US)
  Receive Date: 20130705
  Receipt Date: 20130730
  Transmission Date: 20140515
  Serious: No
  Sender: FDA-Public Use
  Company Number: US-ASTRAZENECA-2013SE24961

PATIENT
  Age: 56 Year
  Sex: Female
  Weight: 74.4 kg

DRUGS (17)
  1. CRESTOR [Suspect]
     Indication: BLOOD CHOLESTEROL INCREASED
     Route: 048
  2. SEROQUEL [Suspect]
     Indication: SEROTONIN SYNDROME
     Route: 048
  3. SEROQUEL [Suspect]
     Indication: SLEEP DISORDER
     Route: 048
  4. SEROQUEL [Suspect]
     Indication: BIPOLAR DISORDER
     Route: 048
  5. OMEPRAZOLE [Suspect]
     Indication: GASTROOESOPHAGEAL REFLUX DISEASE
     Route: 048
  6. HCTZ [Suspect]
     Indication: HYPERTENSION
     Route: 065
  7. GEODON [Suspect]
     Indication: SLEEP DISORDER
     Route: 065
  8. LEXAPRO [Concomitant]
  9. OXYBUTYNIN [Concomitant]
  10. ALPRAZOLAM [Concomitant]
     Indication: DEPRESSION
  11. ALPRAZOLAM [Concomitant]
     Indication: MOOD SWINGS
  12. ESCITALOPRAM [Concomitant]
     Indication: MOOD SWINGS
  13. DILTIAZEM [Concomitant]
     Indication: HYPERTENSION
  14. LEVOTHYROXINE [Concomitant]
     Indication: THYROID DISORDER
  15. LAMOTRIGINE [Concomitant]
     Indication: MOOD SWINGS
  16. TRIAMTERENE/ HCTZ [Concomitant]
     Indication: HYPERTENSION
     Dosage: 37.5 - 25 MG, DAILY
  17. TRIAMTERENE/ HCTZ [Concomitant]
     Indication: DIURETIC THERAPY
     Dosage: 37.5 - 25 MG, DAILY

REACTIONS (14)
  - Insomnia [Unknown]
  - Psychomotor hyperactivity [Unknown]
  - Bipolar disorder [Unknown]
  - Adverse event [Unknown]
  - Mania [Unknown]
  - Pain [Unknown]
  - Abnormal behaviour [Unknown]
  - Depression [Unknown]
  - Hypothyroidism [Unknown]
  - Schizophrenia [Unknown]
  - Malaise [Unknown]
  - Drug dose omission [Unknown]
  - Intentional drug misuse [Unknown]
  - Drug ineffective [Unknown]
